FAERS Safety Report 16855409 (Version 1)
Quarter: 2019Q3

REPORT INFORMATION
  Report Type: Spontaneous
  Country: PL (occurrence: PL)
  Receive Date: 20190926
  Receipt Date: 20190926
  Transmission Date: 20191005
  Serious: Yes (Other)
  Sender: FDA-Public Use
  Company Number: PHHY2019PL222041

PATIENT

DRUGS (1)
  1. ELTROMBOPAG [Suspect]
     Active Substance: ELTROMBOPAG
     Indication: PEARSON^S SYNDROME
     Dosage: UNK
     Route: 065

REACTIONS (2)
  - Cataract [Unknown]
  - Product use in unapproved indication [Unknown]
